FAERS Safety Report 25423530 (Version 1)
Quarter: 2025Q2

REPORT INFORMATION
  Report Type: Spontaneous
  Country: GB (occurrence: GB)
  Receive Date: 20250611
  Receipt Date: 20250611
  Transmission Date: 20250716
  Serious: Yes (Other)
  Sender: MYLAN
  Company Number: GB-MYLANLABS-2025M1046630

PATIENT
  Sex: Male

DRUGS (1)
  1. CLOZARIL [Suspect]
     Active Substance: CLOZAPINE
     Indication: Schizophrenia

REACTIONS (12)
  - Mental impairment [Unknown]
  - Hypokalaemia [Unknown]
  - Malaise [Unknown]
  - C-reactive protein decreased [Unknown]
  - Blood albumin increased [Unknown]
  - Sinus tachycardia [Unknown]
  - Dizziness [Unknown]
  - White blood cell count increased [Unknown]
  - Neutrophil count increased [Unknown]
  - Alanine aminotransferase increased [Unknown]
  - Cholinergic rebound syndrome [Recovering/Resolving]
  - Treatment noncompliance [Unknown]
